FAERS Safety Report 5694033-5 (Version None)
Quarter: 2008Q2

REPORT INFORMATION
  Report Type: 
  Country: None (occurrence: None)
  Receive Date: 20080401
  Receipt Date: 20080321
  Transmission Date: 20081010
  Serious: Yes (Death)
  Sender: FDA-Public Use
  Company Number: 2007077442

PATIENT
  Age: 82 Year
  Sex: Female

DRUGS (4)
  1. ZYRTEC [Suspect]
     Dosage: 10 MG, ORAL
     Route: 048
  2. VERAPAMIL HYDROCHLORIDE [Suspect]
     Dosage: 240 MG, ORAL
     Route: 048
  3. GEMFIBROZIL [Suspect]
     Dosage: 600 MG, ORAL
     Route: 048
  4. ARICEPT [Suspect]
     Dosage: 5 MG, ORAL
     Route: 048

REACTIONS (1)
  - DEATH [None]
